FAERS Safety Report 5059929-6 (Version None)
Quarter: 2006Q3

REPORT INFORMATION
  Report Type: 
  Country: None (occurrence: None)
  Receive Date: 20060718
  Receipt Date: 20060707
  Transmission Date: 20061208
  Serious: Yes (Life-Threatening, Hospitalization, Disabling)
  Sender: FDA-Public Use
  Company Number: 02H-153-0205476-00

PATIENT
  Sex: Female
  Weight: 3.89 kg

DRUGS (1)
  1. ATRACURIUM BESYLATE [Suspect]
     Dosage: 10 MG, ONCE, INTRAMUSCULAR
     Route: 030
     Dates: start: 20021129, end: 20021129

REACTIONS (13)
  - BLOOD CREATINE PHOSPHOKINASE INCREASED [None]
  - BRADYCARDIA NEONATAL [None]
  - BRAIN OEDEMA [None]
  - CYANOSIS NEONATAL [None]
  - DEVELOPMENTAL DELAY [None]
  - HYPERGLYCAEMIA [None]
  - HYPOTONIA NEONATAL [None]
  - MEDICATION ERROR [None]
  - NEONATAL DISORDER [None]
  - NEONATAL RESPIRATORY ARREST [None]
  - NEURODEVELOPMENTAL DISORDER [None]
  - RESPIRATORY FAILURE [None]
  - WRONG DRUG ADMINISTERED [None]
